FAERS Safety Report 9392301 (Version 4)
Quarter: 2016Q2

REPORT INFORMATION
  Report Type: Spontaneous
  Country: JP (occurrence: JP)
  Receive Date: 20130710
  Receipt Date: 20160427
  Transmission Date: 20160815
  Serious: Yes (Death, Hospitalization, Other)
  Sender: FDA-Public Use
  Company Number: JP-009507513-1307JPN003226

PATIENT
  Sex: Male

DRUGS (2)
  1. JANUVIA [Suspect]
     Active Substance: SITAGLIPTIN PHOSPHATE
     Dosage: 50 MG, QD
     Route: 048
  2. BASEN [Concomitant]
     Active Substance: VOGLIBOSE
     Dosage: DAILY DOSE UNKNOWN, FORMULATION: POR
     Route: 048

REACTIONS (4)
  - Asthma [Fatal]
  - Pemphigoid [Unknown]
  - Respiratory failure [Fatal]
  - Hypersensitivity [Unknown]
